FAERS Safety Report 22327360 (Version 4)
Quarter: 2024Q2

REPORT INFORMATION
  Report Type: Spontaneous
  Country: US (occurrence: US)
  Receive Date: 20230516
  Receipt Date: 20240405
  Transmission Date: 20240716
  Serious: Yes (Other)
  Sender: FDA-Public Use
  Company Number: US-RADIUS HEALTH INC.-2022US006200

PATIENT
  Sex: Male
  Weight: 47.6 kg

DRUGS (9)
  1. TYMLOS [Suspect]
     Active Substance: ABALOPARATIDE
     Indication: Senile osteoporosis
     Dosage: 40 MICROGRAM, QD
     Route: 058
  2. TYMLOS [Suspect]
     Active Substance: ABALOPARATIDE
     Indication: Traumatic fracture
     Dosage: 50 MICROGRAM, QD
     Route: 058
  3. TYMLOS [Suspect]
     Active Substance: ABALOPARATIDE
     Dosage: 40 MICROGRAM, QD
     Route: 058
  4. TYMLOS [Suspect]
     Active Substance: ABALOPARATIDE
     Dosage: 80MCG DAILY
  5. TYMLOS [Suspect]
     Active Substance: ABALOPARATIDE
     Dosage: 20 MICROGRAM, QD
     Route: 058
  6. UBRELVY [Concomitant]
     Active Substance: UBROGEPANT
     Indication: Product used for unknown indication
  7. ULTRAM [Concomitant]
     Active Substance: TRAMADOL HYDROCHLORIDE
     Indication: Product used for unknown indication
  8. VALIUM [Concomitant]
     Active Substance: DIAZEPAM
     Indication: Product used for unknown indication
  9. SOTALOL [Concomitant]
     Active Substance: SOTALOL
     Indication: Product used for unknown indication

REACTIONS (24)
  - Depression suicidal [Unknown]
  - Neck pain [Not Recovered/Not Resolved]
  - Pain in jaw [Not Recovered/Not Resolved]
  - Chest pain [Not Recovered/Not Resolved]
  - Depression [Unknown]
  - Decreased appetite [Not Recovered/Not Resolved]
  - Presyncope [Unknown]
  - Brain fog [Unknown]
  - Muscle tightness [Unknown]
  - Migraine [Unknown]
  - Weight decreased [Unknown]
  - Headache [Unknown]
  - Dyspnoea [Unknown]
  - Intentional dose omission [Unknown]
  - Asthenia [Not Recovered/Not Resolved]
  - Back pain [Unknown]
  - Dizziness [Not Recovered/Not Resolved]
  - Constipation [Unknown]
  - Fatigue [Unknown]
  - Insomnia [Unknown]
  - Injection site pain [Unknown]
  - Intentional product misuse [Unknown]
  - Product administered at inappropriate site [Unknown]
  - Wrong technique in product usage process [Unknown]
